FAERS Safety Report 9054816 (Version 2)
Quarter: 2013Q1

REPORT INFORMATION
  Report Type: Spontaneous
  Country: BR (occurrence: BR)
  Receive Date: 20130209
  Receipt Date: 20130225
  Transmission Date: 20140127
  Serious: Yes (Hospitalization, Other)
  Sender: FDA-Public Use
  Company Number: PHHY2013BR011712

PATIENT
  Sex: Female

DRUGS (4)
  1. ACLASTA [Suspect]
     Indication: OSTEOPOROSIS
     Dosage: 5 MG
     Route: 042
     Dates: start: 20120803
  2. AAS [Concomitant]
  3. ABLOK [Concomitant]
     Dosage: UNK UKN, UNK
  4. LOSARTAN [Concomitant]
     Dosage: UNK UKN, UNK

REACTIONS (2)
  - Fall [Recovering/Resolving]
  - Hip fracture [Recovering/Resolving]
